FAERS Safety Report 16589133 (Version 1)
Quarter: 2019Q3

REPORT INFORMATION
  Report Type: Spontaneous
  Country: US (occurrence: US)
  Receive Date: 20190718
  Receipt Date: 20190718
  Transmission Date: 20191004
  Serious: No
  Sender: FDA-Public Use
  Company Number: US-GLAXOSMITHKLINE-US2019126085

PATIENT
  Age: 72 Year
  Sex: Male

DRUGS (3)
  1. NICODERM CQ [Suspect]
     Active Substance: NICOTINE
     Indication: SMOKING CESSATION THERAPY
     Dosage: 21 MG, UNK
     Dates: start: 20190626, end: 20190709
  2. FLONASE [Suspect]
     Active Substance: FLUTICASONE PROPIONATE
     Indication: RASH
     Dosage: UNK
  3. FLONASE [Suspect]
     Active Substance: FLUTICASONE PROPIONATE
     Indication: PRURITUS

REACTIONS (4)
  - Application site pruritus [Unknown]
  - Product use in unapproved indication [Unknown]
  - Off label use [Unknown]
  - Application site rash [Unknown]
